FAERS Safety Report 4485824-7 (Version None)
Quarter: 2004Q4

REPORT INFORMATION
  Report Type: 
  Country: None (occurrence: None)
  Receive Date: 20041026
  Receipt Date: 20041021
  Transmission Date: 20050328
  Serious: Yes (Death, Hospitalization)
  Sender: FDA-Public Use
  Company Number: PHNU2004DE03604

PATIENT
  Sex: Male

DRUGS (1)
  1. IMMUNOSPORIN [Suspect]
     Dosage: 100 MG, BID
     Route: 048
     Dates: start: 20040901, end: 20041001

REACTIONS (4)
  - BLOOD CREATININE INCREASED [None]
  - CACHEXIA [None]
  - HERPES ZOSTER [None]
  - LYMPHOPENIA [None]
